FAERS Safety Report 13180750 (Version 1)
Quarter: 2017Q1

REPORT INFORMATION
  Report Type: Spontaneous
  Country: US (occurrence: US)
  Receive Date: 20170202
  Receipt Date: 20170202
  Transmission Date: 20170428
  Serious: No
  Sender: FDA-Public Use
  Company Number: US-SMITH AND NEPHEW, INC-2016SMT00562

PATIENT
  Age: 76 Year
  Sex: Male
  Weight: 126.98 kg

DRUGS (6)
  1. REGRANEX [Suspect]
     Active Substance: BECAPLERMIN
     Indication: DECUBITUS ULCER
     Dosage: UNK, 1X/DAY
     Route: 061
     Dates: start: 20160602, end: 20160612
  2. LONG TERM INSULIN [Concomitant]
     Dosage: UNKNOWN
  3. SIMVASTATIN. [Concomitant]
     Active Substance: SIMVASTATIN
     Dosage: UNKNOWN
  4. METOPROLOL. [Concomitant]
     Active Substance: METOPROLOL
     Dosage: UNK
  5. PLAVIX [Concomitant]
     Active Substance: CLOPIDOGREL BISULFATE
     Dosage: UNKOWN
  6. NOVOLOG [Concomitant]
     Active Substance: INSULIN ASPART
     Dosage: UNKNOWN

REACTIONS (2)
  - Wound complication [Recovering/Resolving]
  - Application site haemorrhage [Unknown]

NARRATIVE: CASE EVENT DATE: 20160618
